FAERS Safety Report 14805641 (Version 1)
Quarter: 2018Q2

REPORT INFORMATION
  Report Type: Spontaneous
  Country: FR (occurrence: FR)
  Receive Date: 20180425
  Receipt Date: 20180425
  Transmission Date: 20180711
  Serious: Yes (Hospitalization)
  Sender: FDA-Public Use
  Company Number: FR-SA-2018SA111403

PATIENT
  Age: 8 Year
  Sex: Male

DRUGS (1)
  1. RIFAMPICINE [Suspect]
     Active Substance: RIFAMPIN
     Indication: INFECTION
     Route: 065
     Dates: start: 20180213, end: 20180214

REACTIONS (1)
  - Skin necrosis [Recovered/Resolved with Sequelae]

NARRATIVE: CASE EVENT DATE: 20180214
